APPROVED DRUG PRODUCT: ZILEUTON
Active Ingredient: ZILEUTON
Strength: 600MG
Dosage Form/Route: TABLET, EXTENDED RELEASE;ORAL
Application: A204929 | Product #001 | TE Code: AB
Applicant: RISING PHARMA HOLDINGS INC
Approved: Mar 17, 2017 | RLD: No | RS: Yes | Type: RX